FAERS Safety Report 15323889 (Version 6)
Quarter: 2025Q3

REPORT INFORMATION
  Report Type: Report from Study
  Country: EU (occurrence: EU)
  Receive Date: 20180828
  Receipt Date: 20250717
  Transmission Date: 20251021
  Serious: Yes (Other)
  Sender: AUROBINDO
  Company Number: EU-EMA-DD-20180813-AKSEVHUMANP-152917

PATIENT

DRUGS (3)
  1. ASPIRIN [Suspect]
     Active Substance: ASPIRIN
     Indication: Product used for unknown indication
     Route: 065
  2. IBUPROFEN [Suspect]
     Active Substance: IBUPROFEN
     Route: 065
  3. IBUPROFEN [Suspect]
     Active Substance: IBUPROFEN
     Indication: Allergy test
     Route: 048

REACTIONS (5)
  - Angioedema [Unknown]
  - Drug hypersensitivity [Unknown]
  - Rash [Unknown]
  - Urticaria [Unknown]
  - Dyspnoea [Unknown]
